FAERS Safety Report 10548468 (Version 1)
Quarter: 2014Q4

REPORT INFORMATION
  Report Type: Spontaneous
  Country: US (occurrence: None)
  Receive Date: 20141027
  Receipt Date: 20141027
  Transmission Date: 20150529
  Serious: Yes (Hospitalization)
  Sender: FDA-Public Use
  Company Number: None

PATIENT
  Age: 41 Year
  Sex: Female
  Weight: 86.5 kg

DRUGS (2)
  1. CISPLATIN. [Suspect]
     Active Substance: CISPLATIN
  2. GEMCITABINE HYDROCHLORIDE. [Suspect]
     Active Substance: GEMCITABINE HYDROCHLORIDE

REACTIONS (9)
  - Heart rate increased [None]
  - Pulmonary infarction [None]
  - Nausea [None]
  - Oxygen saturation decreased [None]
  - Chest pain [None]
  - Vomiting [None]
  - Skin exfoliation [None]
  - Pulmonary embolism [None]
  - Pleuritic pain [None]

NARRATIVE: CASE EVENT DATE: 20140930
